FAERS Safety Report 5396710-2 (Version None)
Quarter: 2007Q3

REPORT INFORMATION
  Report Type: 
  Country: None (occurrence: None)
  Receive Date: 20070725
  Receipt Date: 20060802
  Transmission Date: 20080115
  Serious: No
  Sender: FDA-Public Use
  Company Number: US-AMGEN-KDL188622

PATIENT
  Sex: Female
  Weight: 72.6 kg

DRUGS (1)
  1. EPOGEN [Suspect]
     Indication: DIALYSIS
     Route: 058

REACTIONS (2)
  - HAEMOGLOBIN DECREASED [None]
  - INJECTION SITE PAIN [None]
